FAERS Safety Report 9379476 (Version 1)
Quarter: 2013Q3

REPORT INFORMATION
  Report Type: Other
  Country: GB (occurrence: GB)
  Receive Date: 20130702
  Receipt Date: 20130702
  Transmission Date: 20140515
  Serious: Yes (Other)
  Sender: FDA-Public Use
  Company Number: GB-PERRIGO-13GB006787

PATIENT
  Age: 54 Year
  Sex: Female
  Weight: 50 kg

DRUGS (1)
  1. NAPROXEN 250MG 16028/0144 [Suspect]
     Indication: ARTHRITIS
     Dosage: 500 MG, UNK
     Route: 065

REACTIONS (1)
  - Confusional state [Unknown]
